FAERS Safety Report 23318370 (Version 1)
Quarter: 2023Q4

REPORT INFORMATION
  Report Type: Report from Study
  Country: CZ (occurrence: CZ)
  Receive Date: 20231220
  Receipt Date: 20231220
  Transmission Date: 20240109
  Serious: Yes (Hospitalization)
  Sender: FDA-Public Use
  Company Number: CZ-SAMSUNG BIOEPIS-SB-2023-32847

PATIENT
  Age: 61 Year
  Sex: Female

DRUGS (1)
  1. ETANERCEPT [Suspect]
     Active Substance: ETANERCEPT
     Indication: Rheumatoid arthritis
     Dosage: UNKNOWN
     Route: 065

REACTIONS (1)
  - Ligament rupture [Recovering/Resolving]

NARRATIVE: CASE EVENT DATE: 20231018
